FAERS Safety Report 20904794 (Version 1)
Quarter: 2022Q2

REPORT INFORMATION
  Report Type: Spontaneous
  Country: US (occurrence: None)
  Receive Date: 20220601
  Receipt Date: 20220601
  Transmission Date: 20220721
  Serious: No
  Sender: FDA-Public Use
  Company Number: None

PATIENT
  Sex: Female
  Weight: 93.44 kg

DRUGS (6)
  1. IBRANCE [Suspect]
     Active Substance: PALBOCICLIB
     Indication: Breast cancer female
     Dosage: 75 MG DAILY ORAL?
     Route: 048
  2. amlodarone hcl [Concomitant]
  3. ELIQUIS [Concomitant]
     Active Substance: APIXABAN
  4. EXEMESTANE [Concomitant]
     Active Substance: EXEMESTANE
  5. FEBUXOSTAT [Concomitant]
     Active Substance: FEBUXOSTAT
  6. LEVOTHYROXINE SODIUM [Concomitant]
     Active Substance: LEVOTHYROXINE SODIUM

REACTIONS (2)
  - Gastrointestinal haemorrhage [None]
  - Therapy interrupted [None]
